FAERS Safety Report 6195678-9 (Version None)
Quarter: 2009Q2

REPORT INFORMATION
  Report Type: 
  Country: None (occurrence: None)
  Receive Date: 20090519
  Receipt Date: 20090513
  Transmission Date: 20091009
  Serious: Yes (Death, Other)
  Sender: FDA-Public Use
  Company Number: US-ABBOTT-09P-163-0573414-00

PATIENT
  Sex: Male
  Weight: 113.5 kg

DRUGS (1)
  1. DEPAKOTE [Suspect]
     Indication: CONVULSION
     Route: 048
     Dates: start: 19990101, end: 20071001

REACTIONS (14)
  - CARDIAC NEOPLASM MALIGNANT [None]
  - CHROMATURIA [None]
  - CYSTIC FIBROSIS PANCREATIC [None]
  - DRUG LEVEL INCREASED [None]
  - FAECES DISCOLOURED [None]
  - INTENTIONAL DRUG MISUSE [None]
  - JAUNDICE [None]
  - LIVER INJURY [None]
  - PANCREATIC CARCINOMA [None]
  - PANCREATIC CYST [None]
  - PANCREATIC DUCT OBSTRUCTION [None]
  - PETIT MAL EPILEPSY [None]
  - RENAL FAILURE [None]
  - TREMOR [None]
